FAERS Safety Report 23839287 (Version 2)
Quarter: 2024Q2

REPORT INFORMATION
  Report Type: Report from Study
  Country: US (occurrence: US)
  Receive Date: 20240509
  Receipt Date: 20240514
  Transmission Date: 20240715
  Serious: Yes (Other)
  Sender: FDA-Public Use
  Company Number: US-ABBVIE-5752340

PATIENT
  Sex: Male

DRUGS (1)
  1. CREON [Suspect]
     Active Substance: PANCRELIPASE AMYLASE\PANCRELIPASE LIPASE\PANCRELIPASE PROTEASE
     Indication: Product used for unknown indication
     Dosage: FORM STRENGTH: 24000 UNIT?TAKE TWO CAPSULES BY MOUTH WITH EACH MEAL AND TAKE 1 CAPSULE BY MOUTH W...
     Route: 048

REACTIONS (4)
  - Pancreatic carcinoma [Unknown]
  - Hypoacusis [Unknown]
  - Prostate cancer [Unknown]
  - Spinal operation [Unknown]

NARRATIVE: CASE EVENT DATE: 20040101
